FAERS Safety Report 6197786-5 (Version None)
Quarter: 2009Q2

REPORT INFORMATION
  Report Type: 
  Country: None (occurrence: None)
  Receive Date: 20090521
  Receipt Date: 20090514
  Transmission Date: 20091009
  Serious: Yes (Hospitalization)
  Sender: FDA-Public Use
  Company Number: JP-PFIZER INC-2009213028

PATIENT
  Age: 90 Year

DRUGS (6)
  1. ALDACTONE [Suspect]
     Indication: CARDIAC FAILURE CHRONIC
     Dosage: 50 MG/DAY
     Route: 048
     Dates: start: 20090423, end: 20090428
  2. LASIX [Concomitant]
     Dosage: UNK
     Route: 048
  3. ASPIRIN [Concomitant]
     Dosage: UNK
     Route: 048
  4. TAKEPRON [Concomitant]
     Dosage: UNK
     Route: 048
  5. ARTIST [Concomitant]
     Dosage: UNK
     Route: 048
     Dates: start: 20090415, end: 20090422
  6. DIGOSIN [Concomitant]
     Dosage: UNK
     Route: 048
     Dates: start: 20090419, end: 20090422

REACTIONS (1)
  - PANCYTOPENIA [None]
